FAERS Safety Report 9281913 (Version 1)
Quarter: 2013Q2

REPORT INFORMATION
  Report Type: Spontaneous
  Country: US (occurrence: US)
  Receive Date: 20130510
  Receipt Date: 20130510
  Transmission Date: 20140414
  Serious: Yes (Hospitalization)
  Sender: FDA-Public Use
  Company Number: US-BIOGENIDEC-2013BI041343

PATIENT
  Age: 50 Year
  Sex: Female

DRUGS (1)
  1. TYSABRI [Suspect]
     Indication: MULTIPLE SCLEROSIS
     Route: 042
     Dates: start: 20080715

REACTIONS (6)
  - Knee arthroplasty [Recovered/Resolved]
  - Arthralgia [Unknown]
  - Musculoskeletal stiffness [Unknown]
  - Cyst [Unknown]
  - Rotator cuff syndrome [Unknown]
  - Pharyngitis streptococcal [Unknown]
